FAERS Safety Report 5234836-4 (Version None)
Quarter: 2007Q1

REPORT INFORMATION
  Report Type: 
  Country: None (occurrence: None)
  Receive Date: 20070209
  Receipt Date: 20070130
  Transmission Date: 20070707
  Serious: Yes (Other)
  Sender: FDA-Public Use
  Company Number: GB-PFIZER INC-2007002754

PATIENT
  Age: 24 Year
  Sex: Female
  Weight: 41 kg

DRUGS (12)
  1. DIFLUCAN [Suspect]
     Indication: CANDIDIASIS
     Route: 042
  2. RIFAMPICIN [Concomitant]
     Route: 042
     Dates: start: 20061016, end: 20070117
  3. ISONIAZID [Concomitant]
  4. CLARITHROMYCIN [Concomitant]
     Route: 042
     Dates: start: 20061016, end: 20070117
  5. CIPROFLOXACIN [Concomitant]
     Route: 042
     Dates: start: 20061016, end: 20070117
  6. CLARITHROMYCIN [Concomitant]
     Route: 048
  7. CIPROFLOXACIN [Concomitant]
     Route: 048
     Dates: start: 20070117
  8. RIFAMPICIN [Concomitant]
     Route: 048
     Dates: start: 20070117
  9. TEICOPLANIN [Concomitant]
     Route: 042
     Dates: start: 20061227
  10. LAMIVUDINE [Concomitant]
     Dates: start: 20070102
  11. ZIDOVUDINE [Concomitant]
     Dates: start: 20070102
  12. EFAVIRENZ [Concomitant]
     Dates: start: 20070102

REACTIONS (2)
  - BRADYCARDIA [None]
  - ELECTROCARDIOGRAM QT PROLONGED [None]
